FAERS Safety Report 9098907 (Version 2)
Quarter: 2013Q2

REPORT INFORMATION
  Report Type: Spontaneous
  Country: FR (occurrence: FR)
  Receive Date: 20130213
  Receipt Date: 20130506
  Transmission Date: 20140414
  Serious: Yes (Life-Threatening, Hospitalization, Other)
  Sender: FDA-Public Use
  Company Number: FR-PFIZER INC-2013056412

PATIENT
  Age: 74 Year
  Sex: Male

DRUGS (3)
  1. CORDARONE [Suspect]
     Indication: ATRIAL FIBRILLATION
     Dosage: UNK
     Route: 048
     Dates: start: 2010, end: 20121221
  2. CRESTOR [Suspect]
     Indication: HYPERCHOLESTEROLAEMIA
     Dosage: 20 MG, DAILY
     Route: 048
     Dates: end: 20121221
  3. PRADAXA [Suspect]
     Dosage: 110 MG TWICE DAILY
     Route: 048
     Dates: end: 20121221

REACTIONS (10)
  - Alveolitis allergic [Recovered/Resolved]
  - Respiratory distress [Recovered/Resolved]
  - Photosensitivity reaction [Not Recovered/Not Resolved]
  - Pneumonia bacterial [Unknown]
  - Atrial fibrillation [Unknown]
  - Heart injury [Unknown]
  - Neuromyopathy [Unknown]
  - Gangrene [Unknown]
  - Malnutrition [Unknown]
  - Slipping rib syndrome [Unknown]
